FAERS Safety Report 9091233 (Version 1)
Quarter: 2013Q1

REPORT INFORMATION
  Report Type: Report from Study
  Country: US (occurrence: US)
  Receive Date: 20130131
  Receipt Date: 20130131
  Transmission Date: 20140127
  Serious: No
  Sender: FDA-Public Use
  Company Number: US-ABBOTT-12P-163-1004409-00

PATIENT
  Age: 51 Year
  Sex: Male

DRUGS (10)
  1. HUMIRA [Suspect]
     Indication: RHEUMATOID ARTHRITIS
  2. VITAMIN D [Concomitant]
     Indication: PRODUCT USED FOR UNKNOWN INDICATION
     Route: 048
  3. LOSARTAN [Concomitant]
     Indication: ARTERIOSCLEROSIS CORONARY ARTERY
     Route: 048
  4. FLEXERIL [Concomitant]
     Indication: MUSCLE RELAXANT THERAPY
     Route: 048
  5. PROZAC [Concomitant]
     Indication: ANXIETY
     Route: 048
  6. VALIUM [Concomitant]
     Indication: MUSCLE SPASMS
     Route: 048
  7. PERCOCET [Concomitant]
     Indication: PAIN
     Dosage: 5/325MG THREE TIMES DAILY AS NEEDED
     Route: 048
  8. PREVACID [Concomitant]
     Indication: GASTRIC DISORDER
     Route: 048
  9. BENADRYL [Concomitant]
     Indication: INSOMNIA
  10. BENADRYL [Concomitant]
     Indication: SEASONAL ALLERGY

REACTIONS (3)
  - Urinary incontinence [Unknown]
  - Cataract [Not Recovered/Not Resolved]
  - Arthritis [Unknown]
